FAERS Safety Report 26041845 (Version 2)
Quarter: 2025Q4

REPORT INFORMATION
  Report Type: Report from Study
  Country: EU (occurrence: EU)
  Receive Date: 20251113
  Receipt Date: 20251120
  Transmission Date: 20260117
  Serious: Yes (Other)
  Sender: EMD SERONO INC
  Company Number: EU-Merck Healthcare KGaA-2025057419

PATIENT
  Sex: Female

DRUGS (4)
  1. MAVENCLAD [Suspect]
     Active Substance: CLADRIBINE
     Indication: Relapsing-remitting multiple sclerosis
     Dosage: YEAR TWO WEEK FIVE THERAPY ,2 TABLET ON DAY 1 TO 2 , ONE TABLET ON DAY 3 TO 5
  2. MAVENCLAD [Suspect]
     Active Substance: CLADRIBINE
     Dosage: YEAR ONE WEEK ONE THERAPY ,2 TABLET ON DAY 1 , ONE TABLET ON DAY 2 TO 5
  3. MAVENCLAD [Suspect]
     Active Substance: CLADRIBINE
     Dosage: YEAR ONE WEEK FIVE THERAPY ,2 TABLET ON DAY 1 , ONE TABLET ON DAY 2 TO 5
  4. MAVENCLAD [Suspect]
     Active Substance: CLADRIBINE
     Dosage: YEAR TWO WEEK ONE THERAPY ,2 TABLET ON DAY 1 TO 2 , ONE TABLET ON DAY 3 TO 5

REACTIONS (4)
  - Immunodeficiency [Unknown]
  - Fatigue [Unknown]
  - Headache [Unknown]
  - Dizziness postural [Unknown]
